FAERS Safety Report 17973432 (Version 1)
Quarter: 2020Q3

REPORT INFORMATION
  Report Type: Spontaneous
  Country: US (occurrence: US)
  Receive Date: 20200702
  Receipt Date: 20200702
  Transmission Date: 20201103
  Serious: Yes (Hospitalization, Disabling)
  Sender: FDA-Public Use
  Company Number: US-TEVA-2020-US-1794249

PATIENT
  Sex: Female

DRUGS (20)
  1. AUSTEDO [Suspect]
     Active Substance: DEUTETRABENAZINE
     Indication: DYSKINESIA
     Dosage: 36 MILLIGRAM DAILY;
     Route: 048
     Dates: start: 2016
  2. VITAMIN D3 125MCG [Concomitant]
  3. OMEPRAZOLE 20 MG [Concomitant]
     Active Substance: OMEPRAZOLE
  4. ZINC?15 66 MG [Concomitant]
  5. FERROUS SULFATE 324(65)MG [Concomitant]
  6. AMLODIPINE BESYLATE. [Concomitant]
     Active Substance: AMLODIPINE BESYLATE
  7. GABAPENTIN 300 MG [Concomitant]
     Active Substance: GABAPENTIN
  8. MULTIVITAMIN [Concomitant]
     Active Substance: VITAMINS
  9. VRAYLAR 1.5 MG [Concomitant]
  10. BACLOFEN 20 MG [Concomitant]
     Active Substance: BACLOFEN
  11. LOSARTAN?HYDROCHLOROTHIAZIDE [Concomitant]
     Active Substance: HYDROCHLOROTHIAZIDE\LOSARTAN
  12. COPPER 2 MG [Concomitant]
  13. PERCOCET 5 MG?325MG [Concomitant]
  14. AUSTEDO [Suspect]
     Active Substance: DEUTETRABENAZINE
     Indication: EARLY ONSET PRIMARY DYSTONIA
  15. BREO ELLIPTA 100?25MCG [Concomitant]
  16. LEVOTHYROXINE SODIUM 50 MCG [Concomitant]
     Active Substance: LEVOTHYROXINE SODIUM
  17. NUVIGIL 150 MG [Concomitant]
  18. CYMBALTA [Concomitant]
     Active Substance: DULOXETINE HYDROCHLORIDE
  19. IMITREX 100 MG [Concomitant]
  20. MIRAPEX 1 MG [Concomitant]

REACTIONS (5)
  - Spinal fusion surgery [Unknown]
  - Pain [Unknown]
  - Walking aid user [Unknown]
  - Intervertebral disc injury [Unknown]
  - Product use in unapproved indication [Unknown]
